FAERS Safety Report 12758579 (Version 1)
Quarter: 2016Q3

REPORT INFORMATION
  Report Type: Report from Study
  Country: ES (occurrence: ES)
  Receive Date: 20160919
  Receipt Date: 20160919
  Transmission Date: 20161109
  Serious: Yes (Life-Threatening)
  Sender: FDA-Public Use
  Company Number: ES-BIOGEN-2016BI00290596

PATIENT
  Age: 79 Year
  Sex: Male

DRUGS (2)
  1. TYSABRI [Suspect]
     Active Substance: NATALIZUMAB
     Indication: ISCHAEMIC STROKE
     Route: 042
     Dates: start: 20160828
  2. MANNITOL. [Concomitant]
     Active Substance: MANNITOL
     Indication: HAEMORRHAGE
     Route: 065
     Dates: start: 20160902

REACTIONS (1)
  - Respiratory failure [Recovered/Resolved]

NARRATIVE: CASE EVENT DATE: 20160903
